FAERS Safety Report 5003255-8 (Version None)
Quarter: 2006Q2

REPORT INFORMATION
  Report Type: 
  Country: None (occurrence: None)
  Receive Date: 20060510
  Receipt Date: 20060504
  Transmission Date: 20061013
  Serious: Yes (Death, Hospitalization)
  Sender: FDA-Public Use
  Company Number: SEWYE600004MAY06

PATIENT
  Age: 60 Year
  Sex: Male

DRUGS (2)
  1. NEORAL [Suspect]
     Indication: PROPHYLAXIS AGAINST TRANSPLANT REJECTION
     Dosage: ; 100 MG 2X PER 1 DAY
     Route: 048
     Dates: start: 20051115, end: 20060227
  2. NEORAL [Suspect]
     Indication: PROPHYLAXIS AGAINST TRANSPLANT REJECTION
     Dosage: ; 100 MG 2X PER 1 DAY
     Route: 048
     Dates: start: 20060227

REACTIONS (5)
  - CEREBRAL INFARCTION [None]
  - CERUMEN IMPACTION [None]
  - EAR DISCOMFORT [None]
  - MENINGITIS [None]
  - SEPSIS [None]
